FAERS Safety Report 5444470-9 (Version None)
Quarter: 2007Q3

REPORT INFORMATION
  Report Type: 
  Country: None (occurrence: None)
  Receive Date: 20070906
  Receipt Date: 20070829
  Transmission Date: 20080115
  Serious: Yes (Hospitalization, Other)
  Sender: FDA-Public Use
  Company Number: US-JNJFOC-20070806531

PATIENT
  Sex: Male
  Weight: 86.64 kg

DRUGS (3)
  1. DURAGESIC-100 [Suspect]
     Indication: PAIN
     Route: 062
  2. ALLEGRA D 24 HOUR [Concomitant]
     Indication: SEASONAL ALLERGY
  3. VALIUM [Concomitant]
     Indication: ANXIETY

REACTIONS (8)
  - BLOOD URINE PRESENT [None]
  - FEELING HOT [None]
  - HOT FLUSH [None]
  - PAIN [None]
  - RENAL CELL CARCINOMA STAGE UNSPECIFIED [None]
  - RENAL MASS [None]
  - VITAMIN B12 DECREASED [None]
  - WEIGHT DECREASED [None]
